FAERS Safety Report 5953350-1 (Version None)
Quarter: 2008Q4

REPORT INFORMATION
  Report Type: 
  Country: None (occurrence: None)
  Receive Date: 20081114
  Receipt Date: 20081107
  Transmission Date: 20090506
  Serious: Yes (Hospitalization)
  Sender: FDA-Public Use
  Company Number: US-GENENTECH-271254

PATIENT
  Age: 65 Year
  Sex: Male
  Weight: 78.005 kg

DRUGS (3)
  1. BEVACIZUMAB [Suspect]
     Indication: BLADDER CANCER
     Dosage: 1217 MG, Q21D
     Route: 042
     Dates: start: 20081002
  2. CISPLATIN [Suspect]
     Indication: BLADDER CANCER
     Dosage: 135 MG, Q21D
     Route: 042
     Dates: start: 20081002
  3. GEMZAR [Suspect]
     Indication: BLADDER CANCER
     Dosage: 1930 MG, UNK
     Route: 042
     Dates: start: 20081002

REACTIONS (7)
  - BLOOD ALKALINE PHOSPHATASE INCREASED [None]
  - ESCHERICHIA URINARY TRACT INFECTION [None]
  - HAEMOGLOBIN DECREASED [None]
  - PLATELET COUNT DECREASED [None]
  - PYREXIA [None]
  - SYNCOPE [None]
  - URINARY TRACT INFECTION [None]
